FAERS Safety Report 21039941 (Version 1)
Quarter: 2022Q3

REPORT INFORMATION
  Report Type: Spontaneous
  Country: PL (occurrence: PL)
  Receive Date: 20220704
  Receipt Date: 20220704
  Transmission Date: 20221027
  Serious: Yes (Other)
  Sender: FDA-Public Use
  Company Number: PL-ABBVIE-22K-129-4453497-00

PATIENT
  Age: 61 Year
  Sex: Male

DRUGS (3)
  1. VENETOCLAX [Suspect]
     Active Substance: VENETOCLAX
     Indication: Acute myeloid leukaemia
     Route: 048
     Dates: start: 2021
  2. VENETOCLAX [Suspect]
     Active Substance: VENETOCLAX
     Dosage: DOSE REDUCED
     Route: 048
  3. AZACITIDINE [Concomitant]
     Active Substance: AZACITIDINE
     Indication: Myelodysplastic syndrome
     Dates: start: 202107

REACTIONS (3)
  - Cytopenia [Unknown]
  - Allogenic bone marrow transplantation therapy [Recovering/Resolving]
  - Investigation abnormal [Recovered/Resolved]

NARRATIVE: CASE EVENT DATE: 20220317
